FAERS Safety Report 7035817-0 (Version None)
Quarter: 2010Q4

REPORT INFORMATION
  Report Type: 
  Country: None (occurrence: None)
  Receive Date: 20101007
  Receipt Date: 20101007
  Transmission Date: 20110411
  Serious: Yes (Other)
  Sender: FDA-Public Use
  Company Number: None

PATIENT
  Age: 74 Year
  Sex: Female

DRUGS (1)
  1. LUCENTIS [Suspect]
     Indication: MACULAR DEGENERATION
     Dosage: ONE EVERY FOUR WEEKS INTRAOCULAR
     Route: 031
     Dates: start: 20100723, end: 20100928

REACTIONS (1)
  - ENDOPHTHALMITIS [None]
